FAERS Safety Report 11272219 (Version 1)
Quarter: 2015Q3

REPORT INFORMATION
  Report Type: Spontaneous
  Country: US (occurrence: None)
  Receive Date: 20150713
  Receipt Date: 20150713
  Transmission Date: 20151125
  Serious: No
  Sender: FDA-Public Use
  Company Number: None

PATIENT
  Age: 70 Year
  Sex: Female
  Weight: 53.52 kg

DRUGS (7)
  1. COENZYME Q 10 [Concomitant]
  2. NAPROXAN [Concomitant]
  3. LIVALO [Concomitant]
     Active Substance: PITAVASTATIN CALCIUM
  4. ASA [Concomitant]
     Active Substance: ASPIRIN
  5. NADOLOL. [Concomitant]
     Active Substance: NADOLOL
  6. PRILOSEC OTC [Suspect]
     Active Substance: OMEPRAZOLE MAGNESIUM
     Indication: DYSPHONIA
     Dosage: 1 PILL
     Route: 048
     Dates: start: 20150706, end: 20150709
  7. VITAMIN D [Concomitant]
     Active Substance: CHOLECALCIFEROL

REACTIONS (1)
  - Cough [None]

NARRATIVE: CASE EVENT DATE: 20150710
